FAERS Safety Report 14114727 (Version 1)
Quarter: 2017Q4

REPORT INFORMATION
  Report Type: Spontaneous
  Country: JP (occurrence: JP)
  Receive Date: 20171023
  Receipt Date: 20171023
  Transmission Date: 20180321
  Serious: Yes (Hospitalization)
  Sender: FDA-Public Use
  Company Number: JP-PFIZER INC-2017448909

PATIENT
  Age: 8 Decade
  Sex: Female

DRUGS (1)
  1. VFEND [Suspect]
     Active Substance: VORICONAZOLE
     Dosage: 200 MG, DAILY
     Route: 048
     Dates: start: 2017, end: 20170620

REACTIONS (2)
  - Mycobacterium abscessus infection [Recovering/Resolving]
  - Pyrexia [Recovering/Resolving]
